FAERS Safety Report 4749349-3 (Version None)
Quarter: 2005Q3

REPORT INFORMATION
  Report Type: 
  Country: None (occurrence: None)
  Receive Date: 20050812
  Receipt Date: 20050420
  Transmission Date: 20060218
  Serious: Yes (Other)
  Sender: FDA-Public Use
  Company Number: 401517

PATIENT
  Age: 54 Year
  Sex: Female
  Weight: 62.6 kg

DRUGS (3)
  1. PEGASYS [Suspect]
     Indication: HEPATITIS C
     Dosage: 180 MCG 1 PER WEEK SUBCUTANEOUS
     Route: 058
     Dates: start: 20050106
  2. RIBASPHERE [Suspect]
     Indication: HEPATITIS C
     Dosage: 400 MG 2 PER DAY ORAL
     Route: 048
     Dates: start: 20050106
  3. WELLBUTRIN [Concomitant]

REACTIONS (19)
  - APATHY [None]
  - COUGH [None]
  - DEPRESSION [None]
  - ERYTHEMA OF EYELID [None]
  - FATIGUE [None]
  - HAEMOGLOBIN DECREASED [None]
  - HEADACHE [None]
  - HERPES SIMPLEX [None]
  - HERPES VIRUS INFECTION [None]
  - HYPOTRICHOSIS [None]
  - NAUSEA [None]
  - NEUTROPHIL COUNT DECREASED [None]
  - PHARYNGOLARYNGEAL PAIN [None]
  - PLATELET COUNT DECREASED [None]
  - RASH [None]
  - SKIN DISCOLOURATION [None]
  - TONGUE ULCERATION [None]
  - WEIGHT INCREASED [None]
  - WHITE BLOOD CELL COUNT DECREASED [None]
